FAERS Safety Report 9014322 (Version 2)
Quarter: 2013Q1

REPORT INFORMATION
  Report Type: Spontaneous
  Country: US (occurrence: US)
  Receive Date: 20130115
  Receipt Date: 20130211
  Transmission Date: 20140127
  Serious: No
  Sender: FDA-Public Use
  Company Number: US-PFIZER INC-2013016208

PATIENT
  Age: 59 Year
  Sex: Male
  Weight: 77.55 kg

DRUGS (8)
  1. XALKORI [Suspect]
     Indication: LUNG NEOPLASM MALIGNANT
     Dosage: UNK
  2. XALKORI [Suspect]
     Dosage: 250 MG, 2X/DAY
     Dates: start: 20121127
  3. PRILOSEC [Concomitant]
     Dosage: UNK
  4. COLACE [Concomitant]
     Dosage: UNK
  5. AUGMENTIN [Concomitant]
     Dosage: UNK
  6. ACETYLSALICYLIC ACID [Concomitant]
     Dosage: 81 MG, UNK
  7. FENTANYL [Concomitant]
     Dosage: UNK
  8. LEVAQUIN [Concomitant]
     Dosage: UNK

REACTIONS (3)
  - Skin disorder [Recovering/Resolving]
  - Thrombosis [Unknown]
  - Vomiting [Recovering/Resolving]
